FAERS Safety Report 8268979-8 (Version None)
Quarter: 2012Q2

REPORT INFORMATION
  Report Type: 
  Country: None (occurrence: None)
  Receive Date: 20120409
  Receipt Date: 20120406
  Transmission Date: 20120825
  Serious: Yes (Death, Other)
  Sender: FDA-Public Use
  Company Number: PHHY2012MX029859

PATIENT
  Sex: Female

DRUGS (3)
  1. ZOLEDRONOC ACID [Suspect]
     Indication: OSTEOPOROSIS
     Dosage: 5 MG/100 ML ONCE A YEAR
     Route: 042
     Dates: start: 20111005
  2. LOMOTRIGINA [Concomitant]
     Dosage: 0.5 TABLET BY DAY AT NIGHT
     Dates: start: 20100101, end: 20120101
  3. OMEPRAZOLE [Concomitant]
     Dosage: ONCE A DAY
     Dates: end: 20111201

REACTIONS (3)
  - DEMENTIA ALZHEIMER'S TYPE [None]
  - PNEUMONIA [None]
  - CARDIO-RESPIRATORY ARREST [None]
